FAERS Safety Report 4736309-1 (Version None)
Quarter: 2005Q3

REPORT INFORMATION
  Report Type: 
  Country: None (occurrence: None)
  Receive Date: 20050804
  Receipt Date: 20050725
  Transmission Date: 20060218
  Serious: Yes (Other)
  Sender: FDA-Public Use
  Company Number: 2005093352

PATIENT
  Age: 67 Year
  Sex: Male
  Weight: 92.5338 kg

DRUGS (13)
  1. TIKOSYN [Suspect]
     Indication: ATRIAL FIBRILLATION
     Dosage: 500 MCG (250 MCG, 2 IN 1 D) ORAL
     Route: 048
     Dates: start: 20010101
  2. TIKOSYN [Suspect]
     Indication: CARDIAC FAILURE CONGESTIVE
     Dosage: 500 MCG (250 MCG, 2 IN 1 D) ORAL
     Route: 048
     Dates: start: 20010101
  3. LASIX [Concomitant]
  4. PREVACID [Concomitant]
  5. ATENOLOL [Concomitant]
  6. KLOR-CON [Concomitant]
  7. COZAAR [Concomitant]
  8. ECOTRIN (ACETYLSALICYLIC ACID) [Concomitant]
  9. PROCRIT [Concomitant]
  10. INTERFERON (INTERFERON) [Concomitant]
  11. ZOLOFT [Concomitant]
  12. RITALIN [Concomitant]
  13. MULTIVITAMIN [Concomitant]

REACTIONS (1)
  - RECTAL HAEMORRHAGE [None]
